FAERS Safety Report 7536655-2 (Version None)
Quarter: 2011Q2

REPORT INFORMATION
  Report Type: 
  Country: None (occurrence: None)
  Receive Date: 20110609
  Receipt Date: 20110524
  Transmission Date: 20111010
  Serious: Yes (Other)
  Sender: FDA-Public Use
  Company Number: A0814224A

PATIENT
  Age: 63 Year
  Sex: Male

DRUGS (6)
  1. VALTREX [Concomitant]
  2. NEXIUM [Concomitant]
  3. AVANDIA [Suspect]
     Dosage: 8MG PER DAY
     Route: 048
     Dates: start: 19990501, end: 20070501
  4. TERAZOSIN [Concomitant]
  5. GLIPIZIDE [Concomitant]
  6. METFORMIN HYDROCHLORIDE [Concomitant]

REACTIONS (1)
  - CEREBROVASCULAR ACCIDENT [None]
